FAERS Safety Report 15377724 (Version 1)
Quarter: 2018Q3

REPORT INFORMATION
  Report Type: Spontaneous
  Country: DE (occurrence: DE)
  Receive Date: 20180913
  Receipt Date: 20180913
  Transmission Date: 20181010
  Serious: Yes (Hospitalization, Other)
  Sender: FDA-Public Use
  Company Number: DE-TEVA-2018-DE-951159

PATIENT
  Age: 79 Year
  Sex: Male

DRUGS (1)
  1. ZOLPIDEM [Suspect]
     Active Substance: ZOLPIDEM\ZOLPIDEM TARTRATE
     Dates: start: 2008

REACTIONS (4)
  - Drug dependence [Unknown]
  - Product use issue [Unknown]
  - Hospitalisation [Unknown]
  - Jaw disorder [Unknown]
